FAERS Safety Report 22841901 (Version 2)
Quarter: 2025Q3

REPORT INFORMATION
  Report Type: Spontaneous
  Country: US (occurrence: US)
  Receive Date: 20230821
  Receipt Date: 20250916
  Transmission Date: 20251021
  Serious: No
  Sender: SANOFI AVENTIS
  Company Number: US-SA-SAC20230816001419

PATIENT
  Sex: Female
  Weight: 122 kg

DRUGS (15)
  1. DUPIXENT [Suspect]
     Active Substance: DUPILUMAB
     Indication: Dermatitis atopic
     Dosage: 300 MG, QOW
     Route: 058
     Dates: start: 202111
  2. METOPROLOL SUCCINATE [Concomitant]
     Active Substance: METOPROLOL SUCCINATE
  3. LEVOTHYROXINE SODIUM [Concomitant]
     Active Substance: LEVOTHYROXINE SODIUM
  4. LISINOPRIL [Concomitant]
     Active Substance: LISINOPRIL
  5. GLIPIZIDE [Concomitant]
     Active Substance: GLIPIZIDE
  6. ASPIRIN [Concomitant]
     Active Substance: ASPIRIN
  7. MOUNJARO [Concomitant]
     Active Substance: TIRZEPATIDE
  8. REPATHA [Concomitant]
     Active Substance: EVOLOCUMAB
  9. CLOBETASOL [Concomitant]
     Active Substance: CLOBETASOL
  10. ASPIRIN [Concomitant]
     Active Substance: ASPIRIN
  11. EBGLYSS [Concomitant]
     Active Substance: LEBRIKIZUMAB-LBKZ
  12. FLAXSEED [Concomitant]
     Active Substance: FLAX SEED
  13. MELOXICAM [Concomitant]
     Active Substance: MELOXICAM
  14. OZEMPIC [Concomitant]
     Active Substance: SEMAGLUTIDE
  15. PFIZER-BIONTECH COVID-19 VACCINE [Concomitant]
     Active Substance: TOZINAMERAN

REACTIONS (4)
  - Contusion [Recovered/Resolved]
  - Rash macular [Not Recovered/Not Resolved]
  - Pruritus [Unknown]
  - Drug ineffective [Unknown]
